FAERS Safety Report 6172355-1 (Version None)
Quarter: 2009Q2

REPORT INFORMATION
  Report Type: 
  Country: None (occurrence: None)
  Receive Date: 20090424
  Receipt Date: 20090119
  Transmission Date: 20091009
  Serious: No
  Sender: FDA-Public Use
  Company Number: ALL1-2009-00145

PATIENT
  Age: 10 Year
  Sex: Female
  Weight: 47.6 kg

DRUGS (6)
  1. VYVANSE [Suspect]
     Indication: ATTENTION DEFICIT/HYPERACTIVITY DISORDER
     Dosage: 30 MG, 1X/DAY:QD, ORAL
     Route: 048
     Dates: start: 20081105, end: 20081105
  2. VYVANSE [Suspect]
     Indication: ATTENTION DEFICIT/HYPERACTIVITY DISORDER
     Dosage: 30 MG, 1X/DAY:QD, ORAL
     Route: 048
     Dates: start: 20090114, end: 20090114
  3. MULTIVITAMIN [Concomitant]
  4. ADVAIR DISKUS 100/50 [Concomitant]
  5. ZYRTEC [Concomitant]
  6. FLUTICASONE [Concomitant]

REACTIONS (5)
  - ABDOMINAL PAIN UPPER [None]
  - AGITATION [None]
  - ANOREXIA [None]
  - HUNGER [None]
  - TIC [None]
